FAERS Safety Report 23799008 (Version 1)
Quarter: 2024Q2

REPORT INFORMATION
  Report Type: Spontaneous
  Country: US (occurrence: None)
  Receive Date: 20240427
  Receipt Date: 20240427
  Transmission Date: 20240716
  Serious: No
  Sender: FDA-Public Use
  Company Number: None

PATIENT
  Age: 56 Year
  Sex: Female

DRUGS (1)
  1. DAPTOMYCIN [Suspect]
     Active Substance: DAPTOMYCIN
     Indication: Postoperative wound infection
     Dosage: FREQUENCY : DAILY;?
     Route: 042
     Dates: start: 20230406, end: 20230423

REACTIONS (11)
  - Mental status changes [None]
  - Culture urine positive [None]
  - Staphylococcal infection [None]
  - Bacteraemia [None]
  - Blood creatine phosphokinase increased [None]
  - Asthenia [None]
  - Pain [None]
  - Chills [None]
  - Aspartate aminotransferase increased [None]
  - Alanine aminotransferase increased [None]
  - Wound infection staphylococcal [None]

NARRATIVE: CASE EVENT DATE: 20230424
